FAERS Safety Report 9680373 (Version 2)
Quarter: 2013Q4

REPORT INFORMATION
  Report Type: Spontaneous
  Country: DK (occurrence: DK)
  Receive Date: 20131111
  Receipt Date: 20131111
  Transmission Date: 20140711
  Serious: Yes (Other)
  Sender: FDA-Public Use
  Company Number: DK-SHIRE-ALL1-2013-06104

PATIENT
  Age: 19 Year
  Sex: Female
  Weight: 48.4 kg

DRUGS (3)
  1. ELVANSE [Suspect]
     Indication: ATTENTION DEFICIT/HYPERACTIVITY DISORDER
     Dosage: 30 MG, 1X/DAY:QD
     Route: 048
     Dates: start: 20130614, end: 20130621
  2. ELVANSE [Suspect]
     Dosage: 30 MG, UNKNOWN
     Route: 048
     Dates: start: 2013
  3. SULFAMETHIZOL [Concomitant]
     Indication: CYSTITIS
     Dosage: UNK, UNKNOWN
     Route: 065

REACTIONS (6)
  - Psychotic disorder [Recovered/Resolved]
  - Back pain [Unknown]
  - Muscle spasms [Unknown]
  - Cold sweat [Unknown]
  - Influenza [Unknown]
  - Nausea [Unknown]
